FAERS Safety Report 17793978 (Version 3)
Quarter: 2020Q4

REPORT INFORMATION
  Report Type: Report from Study
  Country: US (occurrence: US)
  Receive Date: 20200515
  Receipt Date: 20201126
  Transmission Date: 20210113
  Serious: No
  Sender: FDA-Public Use
  Company Number: NVSC2020US132701

PATIENT
  Age: 75 Year
  Sex: Male

DRUGS (1)
  1. ENTRESTO [Suspect]
     Active Substance: SACUBITRIL\VALSARTAN
     Indication: PRODUCT USED FOR UNKNOWN INDICATION
     Dosage: 100 MG (49/51 MG), BID
     Route: 048
     Dates: start: 202003

REACTIONS (13)
  - Weight decreased [Unknown]
  - Concomitant disease aggravated [Unknown]
  - Fall [Unknown]
  - Limb injury [Unknown]
  - Rhinorrhoea [Unknown]
  - Oxygen saturation decreased [Unknown]
  - Wrong product administered [Unknown]
  - Hypersomnia [Unknown]
  - Tremor [Unknown]
  - Product dose omission issue [Unknown]
  - Contusion [Unknown]
  - Arthralgia [Recovered/Resolved]
  - Decreased appetite [Unknown]

NARRATIVE: CASE EVENT DATE: 202008
